FAERS Safety Report 9169839 (Version 2)
Quarter: 2013Q2

REPORT INFORMATION
  Report Type: Spontaneous
  Country: CA (occurrence: CA)
  Receive Date: 20130319
  Receipt Date: 20130401
  Transmission Date: 20140414
  Serious: Yes (Death, Hospitalization)
  Sender: FDA-Public Use
  Company Number: PHHY2013CA024491

PATIENT
  Age: 44 Year
  Sex: Female

DRUGS (7)
  1. CICLOSPORIN [Suspect]
     Indication: AUTOIMMUNE NEUTROPENIA
     Dosage: 75 MG, BID
     Route: 048
  2. CICLOSPORIN [Suspect]
     Dosage: 150 MG, BID
     Route: 048
  3. CICLOSPORIN [Suspect]
     Dosage: 75 MG, BID
     Route: 048
  4. 5-FLUOROURACIL [Suspect]
     Indication: BREAST CANCER STAGE II
     Dosage: 500 MG/M2, UNK
  5. EPIRUBICIN [Suspect]
     Indication: BREAST CANCER STAGE II
     Dosage: 100 MG/M2, UNK
  6. CYCLOPHOSPHAMIDE [Suspect]
     Indication: BREAST CANCER STAGE II
     Dosage: 500 MG/M2, UNK
  7. FILGRASTIM [Concomitant]
     Indication: AUTOIMMUNE NEUTROPENIA
     Dosage: 300 UG, DAILY
     Route: 058

REACTIONS (19)
  - Invasive ductal breast carcinoma [Fatal]
  - Breast mass [Fatal]
  - Breast calcifications [Fatal]
  - Breast cancer metastatic [Fatal]
  - Lymphadenopathy mediastinal [Fatal]
  - Hilar lymphadenopathy [Fatal]
  - Hepatic cancer [Fatal]
  - Adrenal mass [Fatal]
  - Pulmonary mass [Fatal]
  - Splenomegaly [Fatal]
  - Acute respiratory failure [Unknown]
  - Febrile neutropenia [Unknown]
  - Pyrexia [Unknown]
  - Hepatic steatosis [Unknown]
  - Renal failure [Unknown]
  - Dyspnoea [Unknown]
  - Nausea [Recovered/Resolved]
  - Vomiting [Recovered/Resolved]
  - Oral pain [Unknown]
